FAERS Safety Report 7796532-9 (Version None)
Quarter: 2011Q4

REPORT INFORMATION
  Report Type: 
  Country: None (occurrence: None)
  Receive Date: 20111005
  Receipt Date: 20110929
  Transmission Date: 20120403
  Serious: No
  Sender: FDA-Public Use
  Company Number: US-PFIZER INC-2011232790

PATIENT
  Sex: Male
  Weight: 122 kg

DRUGS (2)
  1. FEXOFENADINE [Concomitant]
     Dosage: UNK
  2. LYRICA [Suspect]
     Indication: FIBROMYALGIA
     Dosage: 150 MG, 3X/DAY
     Route: 048

REACTIONS (3)
  - BURNOUT SYNDROME [None]
  - DRUG INEFFECTIVE [None]
  - BLOOD CREATININE INCREASED [None]
